FAERS Safety Report 5708545-9 (Version None)
Quarter: 2008Q2

REPORT INFORMATION
  Report Type: 
  Country: None (occurrence: None)
  Receive Date: 20080417
  Receipt Date: 20080408
  Transmission Date: 20081010
  Serious: Yes (Other)
  Sender: FDA-Public Use
  Company Number: PHHY2008BR05348

PATIENT
  Age: 43 Year
  Sex: Male
  Weight: 85 kg

DRUGS (1)
  1. FORASEQ [Suspect]
     Indication: ASTHMA
     Dosage: 1 OR 2 TABLET/DAY
     Dates: start: 20070101

REACTIONS (3)
  - DIZZINESS [None]
  - DYSPEPSIA [None]
  - HAND FRACTURE [None]
